FAERS Safety Report 7055349-3 (Version None)
Quarter: 2010Q4

REPORT INFORMATION
  Report Type: 
  Country: None (occurrence: None)
  Receive Date: 20101019
  Receipt Date: 20101019
  Transmission Date: 20110411
  Serious: Yes (Other)
  Sender: FDA-Public Use
  Company Number: None

PATIENT
  Age: 52 Year
  Sex: Male
  Weight: 99.7913 kg

DRUGS (8)
  1. GABAPENTIN [Suspect]
     Indication: OFF LABEL USE
     Dosage: ONE CAPSULE EVERY 8 HOURS PO
     Route: 048
     Dates: start: 20100821, end: 20100920
  2. GABAPENTIN [Suspect]
     Indication: OFF LABEL USE
     Dosage: ONE CAPSULE EVERY 8 HOURS PO
     Route: 048
     Dates: start: 20100921, end: 20101014
  3. OXYCODONE HCL [Concomitant]
  4. METHOCARBAMOL [Concomitant]
  5. DOC-Q-LAC [Concomitant]
  6. COMBIVENT [Concomitant]
  7. ADVAIR DISKUS 100/50 [Concomitant]
  8. GENERIC FOR PERCOCET [Concomitant]

REACTIONS (8)
  - ABNORMAL BEHAVIOUR [None]
  - ACTIVITIES OF DAILY LIVING IMPAIRED [None]
  - AGGRESSION [None]
  - DISORIENTATION [None]
  - FATIGUE [None]
  - INCOHERENT [None]
  - MEMORY IMPAIRMENT [None]
  - PERSONALITY CHANGE [None]
